FAERS Safety Report 4894767-6 (Version None)
Quarter: 2006Q1

REPORT INFORMATION
  Report Type: 
  Country: None (occurrence: None)
  Receive Date: 20060126
  Receipt Date: 20060126
  Transmission Date: 20060701
  Serious: Yes (Life-Threatening)
  Sender: FDA-Public Use
  Company Number: None

PATIENT
  Age: 25 Year
  Sex: Female
  Weight: 60.782 kg

DRUGS (1)
  1. PROTOPIC [Suspect]
     Indication: ECZEMA
     Dosage: APPLY LIBERALLY UP TO TWICE A DAY TOP
     Route: 061
     Dates: start: 20031101, end: 20050101

REACTIONS (1)
  - NON-HODGKIN'S LYMPHOMA [None]
